FAERS Safety Report 9665295 (Version 2)
Quarter: 2013Q4

REPORT INFORMATION
  Report Type: Report from Study
  Country: US (occurrence: US)
  Receive Date: 20131101
  Receipt Date: 20131122
  Transmission Date: 20140711
  Serious: Yes (Hospitalization)
  Sender: FDA-Public Use
  Company Number: PHEH2013US022865

PATIENT
  Age: 51 Year
  Sex: Female
  Weight: 83 kg

DRUGS (4)
  1. GILENYA [Suspect]
     Indication: MULTIPLE SCLEROSIS
     Dosage: 0.5 MG, QD
     Route: 048
     Dates: start: 20131030, end: 20131030
  2. L-THYROXINE [Concomitant]
     Indication: HYPOTHYROIDISM
     Dosage: 25 UG, QD
     Route: 048
     Dates: start: 2011
  3. BROMOCRIPTINE [Concomitant]
     Indication: PROLACTINOMA
     Dosage: 5 MG, BID
     Route: 048
     Dates: start: 2011
  4. TOPIRAMATE [Concomitant]
     Indication: MIGRAINE
     Dosage: 75 MG, QD
     Route: 048
     Dates: start: 2011

REACTIONS (2)
  - Atrioventricular block first degree [Unknown]
  - Heart rate decreased [Unknown]
